FAERS Safety Report 22089052 (Version 1)
Quarter: 2023Q1

REPORT INFORMATION
  Report Type: Spontaneous
  Country: US (occurrence: None)
  Receive Date: 20230309
  Receipt Date: 20230309
  Transmission Date: 20230417
  Serious: No
  Sender: FDA-Public Use
  Company Number: None

PATIENT

DRUGS (1)
  1. ESTRATEST [Suspect]
     Active Substance: ESTROGENS, ESTERIFIED\METHYLTESTOSTERONE

REACTIONS (12)
  - Product substitution issue [None]
  - Discomfort [None]
  - Pain [None]
  - Product compounding quality issue [None]
  - Drug level below therapeutic [None]
  - Wrong strength [None]
  - Product dispensing error [None]
  - Hormone level abnormal [None]
  - Product label issue [None]
  - Incorrect dose administered [None]
  - Physical deconditioning [None]
  - Impaired work ability [None]

NARRATIVE: CASE EVENT DATE: 20220721
